FAERS Safety Report 13949165 (Version 2)
Quarter: 2017Q3

REPORT INFORMATION
  Report Type: Spontaneous
  Country: JP (occurrence: JP)
  Receive Date: 20170908
  Receipt Date: 20170927
  Transmission Date: 20171128
  Serious: Yes (Death, Hospitalization)
  Sender: FDA-Public Use
  Company Number: JP-ASTELLAS-2017US035092

PATIENT
  Age: 63 Year
  Sex: Female
  Weight: 34 kg

DRUGS (4)
  1. GEMCITABINE [Suspect]
     Active Substance: GEMCITABINE\GEMCITABINE HYDROCHLORIDE
     Dosage: 500 MG/M2, ONCE WEEKLY (1 WEEK ADMINISTRATION AND 1 WEEK REST)
     Route: 041
     Dates: start: 200808, end: 200909
  2. TARCEVA [Suspect]
     Active Substance: ERLOTINIB HYDROCHLORIDE
     Indication: ADENOCARCINOMA PANCREAS
  3. GEMCITABINE [Suspect]
     Active Substance: GEMCITABINE\GEMCITABINE HYDROCHLORIDE
     Indication: PANCREATIC CARCINOMA
     Dosage: UNK, UNKNOWN FREQ.
     Route: 041
     Dates: start: 200708, end: 200808
  4. TARCEVA [Suspect]
     Active Substance: ERLOTINIB HYDROCHLORIDE
     Indication: PANCREATIC CARCINOMA
     Dosage: UNK UNK, UNKNOWN FREQ. DOSAGE IS UNCERTAIN
     Route: 048
     Dates: start: 200708, end: 200808

REACTIONS (4)
  - Asthma [Unknown]
  - Cardiac failure [Unknown]
  - Chronic obstructive pulmonary disease [Fatal]
  - Interstitial lung disease [Unknown]

NARRATIVE: CASE EVENT DATE: 200909
